FAERS Safety Report 12993826 (Version 2)
Quarter: 2017Q3

REPORT INFORMATION
  Report Type: Spontaneous
  Country: US (occurrence: US)
  Receive Date: 20161202
  Receipt Date: 20170815
  Transmission Date: 20171127
  Serious: Yes (Other)
  Sender: FDA-Public Use
  Company Number: US-JNJFOC-20161016053

PATIENT
  Age: 14 Year
  Sex: Male

DRUGS (15)
  1. RISPERDAL [Suspect]
     Active Substance: RISPERIDONE
     Indication: ATTENTION DEFICIT/HYPERACTIVITY DISORDER
     Dosage: 1MG, 0.5 MG, 0.25 MG
     Route: 048
     Dates: start: 20070724, end: 20120925
  2. RISPERDAL [Suspect]
     Active Substance: RISPERIDONE
     Indication: PERSONALITY CHANGE
     Dosage: 1MG, 0.5 MG, 0.25 MG
     Route: 048
     Dates: start: 20070724, end: 20120925
  3. RISPERDAL [Suspect]
     Active Substance: RISPERIDONE
     Indication: OPPOSITIONAL DEFIANT DISORDER
     Route: 048
     Dates: start: 20121113, end: 20130115
  4. RISPERDAL [Suspect]
     Active Substance: RISPERIDONE
     Indication: OPPOSITIONAL DEFIANT DISORDER
     Route: 048
     Dates: start: 20120925, end: 20121113
  5. RISPERDAL [Suspect]
     Active Substance: RISPERIDONE
     Indication: PERSONALITY CHANGE
     Route: 048
     Dates: start: 20120925, end: 20121113
  6. RISPERDAL [Suspect]
     Active Substance: RISPERIDONE
     Indication: OPPOSITIONAL DEFIANT DISORDER
     Dosage: 1MG, 0.5 MG, 0.25 MG
     Route: 048
     Dates: start: 20070724, end: 20120925
  7. RISPERDAL [Suspect]
     Active Substance: RISPERIDONE
     Indication: PERSONALITY CHANGE
     Route: 048
     Dates: start: 20121113, end: 20130115
  8. RISPERDAL [Suspect]
     Active Substance: RISPERIDONE
     Indication: HYPERSOMNIA
     Route: 048
     Dates: start: 20120925, end: 20121113
  9. RISPERDAL [Suspect]
     Active Substance: RISPERIDONE
     Indication: DRUG THERAPY
     Route: 048
     Dates: start: 20120925, end: 20121113
  10. RISPERDAL [Suspect]
     Active Substance: RISPERIDONE
     Indication: ATTENTION DEFICIT/HYPERACTIVITY DISORDER
     Route: 048
     Dates: start: 20120925, end: 20121113
  11. RISPERDAL [Suspect]
     Active Substance: RISPERIDONE
     Indication: DRUG THERAPY
     Dosage: 1MG, 0.5 MG, 0.25 MG
     Route: 048
     Dates: start: 20070724, end: 20120925
  12. RISPERDAL [Suspect]
     Active Substance: RISPERIDONE
     Indication: DRUG THERAPY
     Route: 048
     Dates: start: 20121113, end: 20130115
  13. RISPERDAL [Suspect]
     Active Substance: RISPERIDONE
     Indication: ATTENTION DEFICIT/HYPERACTIVITY DISORDER
     Route: 048
     Dates: start: 20121113, end: 20130115
  14. RISPERDAL [Suspect]
     Active Substance: RISPERIDONE
     Indication: HYPERSOMNIA
     Dosage: 1MG, 0.5 MG, 0.25 MG
     Route: 048
     Dates: start: 20070724, end: 20120925
  15. RISPERDAL [Suspect]
     Active Substance: RISPERIDONE
     Indication: HYPERSOMNIA
     Route: 048
     Dates: start: 20121113, end: 20130115

REACTIONS (8)
  - Increased appetite [Unknown]
  - Off label use [Unknown]
  - Drug administration error [Unknown]
  - Weight increased [Unknown]
  - Emotional disorder [Unknown]
  - Gynaecomastia [Unknown]
  - Treatment noncompliance [Unknown]
  - Drug ineffective for unapproved indication [Unknown]

NARRATIVE: CASE EVENT DATE: 20120828
